FAERS Safety Report 7225665-0 (Version None)
Quarter: 2011Q1

REPORT INFORMATION
  Report Type: 
  Country: None (occurrence: None)
  Receive Date: 20110110
  Receipt Date: 20110110
  Transmission Date: 20110831
  Serious: Yes (Disabling)
  Sender: FDA-Public Use
  Company Number: None

PATIENT
  Age: 61 Year
  Sex: Female
  Weight: 70.3075 kg

DRUGS (2)
  1. PENLAC [Suspect]
     Dates: start: 20100103, end: 20100104
  2. PENLAC [Suspect]
     Indication: FUNGAL INFECTION
     Dosage: AS MUCH AS NEED TO PAINT NAILS DAILY TOP
     Route: 061
     Dates: start: 20101215, end: 20101221

REACTIONS (1)
  - PARONYCHIA [None]
